FAERS Safety Report 25825033 (Version 2)
Quarter: 2025Q3

REPORT INFORMATION
  Report Type: Spontaneous
  Country: CN (occurrence: CN)
  Receive Date: 20250919
  Receipt Date: 20250924
  Transmission Date: 20251020
  Serious: Yes (Disabling, Other)
  Sender: PFIZER
  Company Number: CN-MLMSERVICE-20250909-PI634013-00270-1

PATIENT
  Age: 36 Year
  Sex: Female

DRUGS (1)
  1. METHYLPREDNISOLONE SODIUM SUCCINATE [Suspect]
     Active Substance: METHYLPREDNISOLONE SODIUM SUCCINATE
     Indication: Optic ischaemic neuropathy
     Route: 031

REACTIONS (7)
  - Incorrect route of product administration [Unknown]
  - Retinal oedema [Unknown]
  - Necrotising retinitis [Unknown]
  - Retinal haemorrhage [Unknown]
  - Blindness [Not Recovered/Not Resolved]
  - Intra-ocular injection complication [Not Recovered/Not Resolved]
  - Off label use [Unknown]
